FAERS Safety Report 25367486 (Version 1)
Quarter: 2025Q2

REPORT INFORMATION
  Report Type: Spontaneous
  Country: IN (occurrence: IN)
  Receive Date: 20250528
  Receipt Date: 20250528
  Transmission Date: 20250717
  Serious: Yes (Death)
  Sender: ROCHE
  Company Number: IN-ROCHE-10000296389

PATIENT
  Age: 59 Year
  Sex: Male

DRUGS (1)
  1. AVASTIN [Suspect]
     Active Substance: BEVACIZUMAB
     Indication: Colorectal cancer metastatic
     Route: 042
     Dates: start: 20250422, end: 20250526

REACTIONS (1)
  - Death [Fatal]

NARRATIVE: CASE EVENT DATE: 20250526
